FAERS Safety Report 16456068 (Version 1)
Quarter: 2019Q2

REPORT INFORMATION
  Report Type: Report from Study
  Country: CA (occurrence: CA)
  Receive Date: 20190620
  Receipt Date: 20190620
  Transmission Date: 20190711
  Serious: Yes (Death)
  Sender: FDA-Public Use
  Company Number: CA-BIOGEN-2019BI00752009

PATIENT
  Age: 46 Year
  Sex: Male

DRUGS (1)
  1. FAMPYRA [Suspect]
     Active Substance: DALFAMPRIDINE
     Indication: GAIT DISTURBANCE
     Route: 048
     Dates: start: 20140529, end: 20190528

REACTIONS (1)
  - Cerebral arteriovenous malformation haemorrhagic [Fatal]

NARRATIVE: CASE EVENT DATE: 20190528
